FAERS Safety Report 19993385 (Version 1)
Quarter: 2021Q4

REPORT INFORMATION
  Report Type: Spontaneous
  Country: FR (occurrence: FR)
  Receive Date: 20211025
  Receipt Date: 20211025
  Transmission Date: 20220303
  Serious: Yes (Hospitalization)
  Sender: FDA-Public Use
  Company Number: None

PATIENT
  Age: 50 Year
  Sex: Female

DRUGS (6)
  1. SUFENTANIL [Suspect]
     Active Substance: SUFENTANIL
     Indication: Anaesthesia
     Dosage: UNK
     Route: 042
     Dates: start: 20210520, end: 20210520
  2. NEFOPAM [Suspect]
     Active Substance: NEFOPAM
     Indication: Analgesic intervention supportive therapy
     Dosage: UNK
     Route: 042
     Dates: start: 20210520, end: 20210520
  3. PROPOFOL [Suspect]
     Active Substance: PROPOFOL
     Indication: Anaesthesia
     Dosage: UNK
     Route: 042
     Dates: start: 20210520, end: 20210520
  4. CEFAZOLIN [Suspect]
     Active Substance: CEFAZOLIN
     Indication: Antibiotic prophylaxis
     Dosage: UNK
     Route: 042
     Dates: start: 20210520, end: 20210520
  5. ATRACURIUM BESYLATE [Suspect]
     Active Substance: ATRACURIUM BESYLATE
     Indication: Anaesthesia
     Dosage: UNK
     Route: 042
     Dates: start: 20210520, end: 20210520
  6. DROPERIDOL [Suspect]
     Active Substance: DROPERIDOL
     Indication: Antiemetic supportive care
     Dosage: UNK
     Route: 042
     Dates: start: 20210520, end: 20210520

REACTIONS (2)
  - Lactic acidosis [Recovering/Resolving]
  - Anticholinergic syndrome [Recovering/Resolving]

NARRATIVE: CASE EVENT DATE: 20210520
